FAERS Safety Report 19269997 (Version 1)
Quarter: 2021Q2

REPORT INFORMATION
  Report Type: Spontaneous
  Country: US (occurrence: US)
  Receive Date: 20210518
  Receipt Date: 20210518
  Transmission Date: 20210717
  Serious: Yes (Other)
  Sender: FDA-Public Use
  Company Number: US-MYLANLABS-2021M1029044

PATIENT
  Age: 73 Year
  Sex: Female

DRUGS (2)
  1. LETROZOLE. [Suspect]
     Active Substance: LETROZOLE
     Indication: TUBULAR BREAST CARCINOMA
     Dosage: 2.5 MILLIGRAM, QD FOR 21 DAYS FOLLOWED BY A 7 DAYS BREAK
     Route: 065
  2. PALBOCICLIB [Suspect]
     Active Substance: PALBOCICLIB
     Indication: TUBULAR BREAST CARCINOMA
     Dosage: 125 MILLIGRAM, QD FOR 21 DAYS FOLLOWED BY A 7 DAYS BREAK
     Route: 065

REACTIONS (1)
  - Subacute cutaneous lupus erythematosus [Recovered/Resolved]
